FAERS Safety Report 20939024 (Version 1)
Quarter: 2022Q2

REPORT INFORMATION
  Report Type: Spontaneous
  Country: US (occurrence: None)
  Receive Date: 20220609
  Receipt Date: 20220609
  Transmission Date: 20220720
  Serious: No
  Sender: FDA-Public Use
  Company Number: None

PATIENT
  Age: 56 Year
  Sex: Female
  Weight: 77.85 kg

DRUGS (1)
  1. ESTRADIOL TRANSDERMAL SYSTEM [Suspect]
     Active Substance: ESTRADIOL
     Indication: Hormone replacement therapy
     Dosage: OTHER QUANTITY : 1 PATCH(ES);?OTHER FREQUENCY : PER WEEK;?
     Route: 062
     Dates: start: 20220504, end: 20220602

REACTIONS (3)
  - Application site pruritus [None]
  - Application site discolouration [None]
  - Product substitution issue [None]

NARRATIVE: CASE EVENT DATE: 20220506
